FAERS Safety Report 9332563 (Version 2)
Quarter: 2013Q4

REPORT INFORMATION
  Report Type: Spontaneous
  Country: ES (occurrence: None)
  Receive Date: 20130603
  Receipt Date: 20131015
  Transmission Date: 20140711
  Serious: Yes (Hospitalization)
  Sender: FDA-Public Use
  Company Number: SYM-2013-04303

PATIENT
  Age: 71 Year
  Sex: Male

DRUGS (12)
  1. 5-FU [Suspect]
     Indication: COLORECTAL CANCER METASTATIC
     Dosage: 1 HR. IV INFUSION EVERY TWO WEEKS.
     Route: 040
     Dates: start: 20130226, end: 20130226
  2. IRINOTECAN [Suspect]
     Indication: COLORECTAL CANCER METASTATIC
     Dosage: 1 HR. IV INFUSION EVERY TWO WEEKS.
     Route: 041
     Dates: start: 20130226, end: 20130226
  3. LEUCOVORIN [Suspect]
     Indication: COLORECTAL CANCER METASTATIC
     Route: 041
     Dates: start: 20130226, end: 20130226
  4. AFLIBERCEPT [Suspect]
     Indication: COLORECTAL CANCER METASTATIC
     Route: 042
     Dates: start: 20130226, end: 20130226
  5. ANALGESICS (ANALGESICS) [Concomitant]
  6. ANTIEPILEPTICS (ANTIEPILEPTICS) [Concomitant]
  7. ANTITHROMBOTIC AGENTS (ANTITHROMBOTIC AGENTS) [Concomitant]
  8. ANGIOTENSIN II ANTAGONISTS (ANGIOTENSIN II ANTAGONISTS AND CALCIUM CHANNE) [Concomitant]
  9. RANITIDINE (RANITIDINE)(RANITIDINE) [Concomitant]
  10. ATORVASTATIN (ATORVASTATIN)(ATORVASTATIN) [Concomitant]
  11. DIURETICS (DIURETICS) [Concomitant]
  12. CORTICOSTEROID NOS (CORTICOSTEROID NOS) (CORTICOSTEROID NOS) [Concomitant]

REACTIONS (3)
  - Diarrhoea [None]
  - Asthenia [None]
  - Nausea [None]
